FAERS Safety Report 9663448 (Version 1)
Quarter: 2013Q4

REPORT INFORMATION
  Report Type: Other
  Country: US (occurrence: US)
  Receive Date: 20131101
  Receipt Date: 20131101
  Transmission Date: 20140711
  Serious: Yes (Death, Other)
  Sender: FDA-Public Use
  Company Number: US-SHIRE-ALL1-2013-07514

PATIENT
  Sex: Female

DRUGS (1)
  1. VPRIV [Suspect]
     Indication: GAUCHER^S DISEASE
     Dosage: 4800 IU, (12 VIALS) OTHER(BIMONTHLY)
     Route: 041
     Dates: start: 20100617

REACTIONS (2)
  - Death [Fatal]
  - Hepatic cancer [Unknown]
